FAERS Safety Report 9374686 (Version 1)
Quarter: 2013Q2

REPORT INFORMATION
  Report Type: Spontaneous
  Country: US (occurrence: US)
  Receive Date: 20130628
  Receipt Date: 20130628
  Transmission Date: 20140414
  Serious: Yes (Hospitalization)
  Sender: FDA-Public Use
  Company Number: US-BAYER-2013-079460

PATIENT
  Age: 26 Year
  Sex: Female

DRUGS (4)
  1. YAZ [Suspect]
     Indication: CONTRACEPTION
  2. GIANVI [Suspect]
  3. METHOCARBAMOL [Concomitant]
     Dosage: 50 MG, UNK
     Dates: start: 20110222
  4. VALACICLOVIR [Concomitant]
     Dosage: 500 MG, UNK
     Dates: start: 20110222

REACTIONS (1)
  - Pulmonary embolism [None]
